FAERS Safety Report 8962515 (Version 1)
Quarter: 2012Q4

REPORT INFORMATION
  Report Type: 
  Country: US (occurrence: US)
  Receive Date: 20121213
  Receipt Date: 20121213
  Transmission Date: 20130627
  Serious: Yes (Other)
  Sender: FDA-Public Use
  Company Number: US-BRISTOL-MYERS SQUIBB COMPANY-17169897

PATIENT
  Age: 64 Year
  Sex: Female

DRUGS (2)
  1. ORENCIA [Suspect]
     Dosage: Last inf on 29Nov12,No of inf:3
     Route: 042
  2. METHOTREXATE [Concomitant]

REACTIONS (2)
  - Foot operation [Unknown]
  - Insomnia [Unknown]
